FAERS Safety Report 6481212-2 (Version None)
Quarter: 2009Q4

REPORT INFORMATION
  Report Type: 
  Country: None (occurrence: None)
  Receive Date: 20091123
  Receipt Date: 20091002
  Transmission Date: 20100525
  Serious: No
  Sender: FDA-Public Use
  Company Number: 8052894

PATIENT
  Age: 40 Year
  Sex: Female
  Weight: 43 kg

DRUGS (5)
  1. CIMZIA [Suspect]
     Indication: CROHN'S DISEASE
     Dosage: 400 MG SC
     Route: 058
     Dates: start: 20090911
  2. ENTOCORT EC [Concomitant]
  3. PRILOSEC [Concomitant]
  4. FLINSTONE VITAMINS W/IRON [Concomitant]
  5. CYANOCOBALAMIN [Concomitant]

REACTIONS (3)
  - INJECTION SITE REACTION [None]
  - PAIN IN EXTREMITY [None]
  - THERAPEUTIC RESPONSE UNEXPECTED [None]
